FAERS Safety Report 18416785 (Version 1)
Quarter: 2020Q4

REPORT INFORMATION
  Report Type: Spontaneous
  Country: JP (occurrence: JP)
  Receive Date: 20201022
  Receipt Date: 20201022
  Transmission Date: 20210114
  Serious: Yes (Death, Hospitalization)
  Sender: FDA-Public Use
  Company Number: JP-JNJFOC-A-CH2020-204268

PATIENT
  Age: 83 Year
  Sex: Female
  Weight: 41.4 kg

DRUGS (15)
  1. UPTRAVI [Suspect]
     Active Substance: SELEXIPAG
     Indication: PULMONARY ARTERIAL HYPERTENSION
     Route: 048
     Dates: start: 20190624, end: 20190721
  2. OPSUMIT [Concomitant]
     Active Substance: MACITENTAN
     Indication: PULMONARY ARTERIAL HYPERTENSION
     Dosage: 10 MG, QD
     Route: 048
  3. LANSOPRAZOLE. [Concomitant]
     Active Substance: LANSOPRAZOLE
     Indication: PROPHYLAXIS
  4. DIART [Concomitant]
     Active Substance: AZOSEMIDE
  5. UPTRAVI [Suspect]
     Active Substance: SELEXIPAG
     Route: 048
     Dates: start: 20191223
  6. UPTRAVI [Suspect]
     Active Substance: SELEXIPAG
     Route: 048
     Dates: start: 20190722, end: 20190818
  7. UPTRAVI [Suspect]
     Active Substance: SELEXIPAG
     Route: 048
     Dates: start: 20190930, end: 20191110
  8. WARFARIN                           /00014802/ [Concomitant]
     Active Substance: WARFARIN
     Indication: PROPHYLAXIS
  9. TORASEMIDE [Concomitant]
     Active Substance: TORSEMIDE
  10. ADCIRCA [Concomitant]
     Active Substance: TADALAFIL
     Indication: PULMONARY ARTERIAL HYPERTENSION
     Dosage: 40 MG, QD
  11. ADEMPAS [Concomitant]
     Active Substance: RIOCIGUAT
     Indication: PULMONARY ARTERIAL HYPERTENSION
     Dosage: UNK
  12. UPTRAVI [Suspect]
     Active Substance: SELEXIPAG
     Route: 048
     Dates: start: 20190819, end: 20190929
  13. THYRADIN [Concomitant]
     Active Substance: LEVOTHYROXINE
  14. ADCIRCA [Concomitant]
     Active Substance: TADALAFIL
  15. UPTRAVI [Suspect]
     Active Substance: SELEXIPAG
     Route: 048
     Dates: start: 20191111, end: 20191222

REACTIONS (4)
  - Therapeutic response decreased [Unknown]
  - Pulmonary arterial hypertension [Fatal]
  - Right ventricular failure [Fatal]
  - Brain natriuretic peptide abnormal [Not Recovered/Not Resolved]

NARRATIVE: CASE EVENT DATE: 20191111
